FAERS Safety Report 20889906 (Version 1)
Quarter: 2022Q2

REPORT INFORMATION
  Report Type: Spontaneous
  Country: JP (occurrence: JP)
  Receive Date: 20220530
  Receipt Date: 20220530
  Transmission Date: 20220721
  Serious: Yes (Other)
  Sender: FDA-Public Use
  Company Number: JP-SUN PHARMACEUTICAL INDUSTRIES LTD-2022RR-337743

PATIENT
  Age: 19 Year
  Sex: Female

DRUGS (8)
  1. RISPERIDONE [Suspect]
     Active Substance: RISPERIDONE
     Indication: Schizophrenia
     Dosage: 5 MILLIGRAM, DAILY, PULVERIZED AND DISPENSED IN POWDER FORM
     Route: 005
  2. RISPERIDONE [Suspect]
     Active Substance: RISPERIDONE
     Dosage: 1 MILLIGRAM X 10 TABLETS
     Route: 005
  3. LEVOMEPROMAZINE [Suspect]
     Active Substance: LEVOMEPROMAZINE
     Indication: Schizophrenia
     Dosage: 10 MILLIGRAM, UNK, PULVERIZED AND DISPENSED IN POWDER FORM
     Route: 065
  4. LEVOMEPROMAZINE [Suspect]
     Active Substance: LEVOMEPROMAZINE
     Dosage: 5 MILLIGRAM X 60 TABLETS
     Route: 065
  5. ZOLPIDEM [Suspect]
     Active Substance: ZOLPIDEM TARTRATE
     Indication: Schizophrenia
     Dosage: 10 MILLIGRAM, UNK, PULVERIZED AND DISPENSED IN POWDER FORM
     Route: 065
  6. ZOLPIDEM [Suspect]
     Active Substance: ZOLPIDEM TARTRATE
     Dosage: 5 MILLIGRAM X 60 TABLETS
     Route: 065
  7. BROTIZOLAM [Suspect]
     Active Substance: BROTIZOLAM
     Indication: Schizophrenia
     Dosage: 0.25 MILLIGRAM, UNK, PULVERIZED AND DISPENSED IN POWDER FORM
     Route: 065
  8. BROTIZOLAM [Suspect]
     Active Substance: BROTIZOLAM
     Dosage: 0.25 MILLIGRAM X 30 TABLETS
     Route: 065

REACTIONS (4)
  - Product use issue [Recovered/Resolved]
  - Intentional overdose [Recovered/Resolved]
  - Altered state of consciousness [Unknown]
  - Hypersomnia [Unknown]
